FAERS Safety Report 19153481 (Version 1)
Quarter: 2021Q2

REPORT INFORMATION
  Report Type: Report from Study
  Country: CA (occurrence: CA)
  Receive Date: 20210419
  Receipt Date: 20210419
  Transmission Date: 20210717
  Serious: Yes (Hospitalization, Other)
  Sender: FDA-Public Use
  Company Number: CA-MYLANLABS-2021M1022358

PATIENT
  Age: 28 Year
  Sex: Male
  Weight: 105 kg

DRUGS (1)
  1. CLOZAPINE. [Suspect]
     Active Substance: CLOZAPINE
     Indication: SCHIZOPHRENIA
     Dosage: 1 DOSAGE FORM, QD
     Route: 048

REACTIONS (6)
  - Tachypnoea [Unknown]
  - Troponin increased [Unknown]
  - Diarrhoea [Unknown]
  - Myocarditis [Recovered/Resolved]
  - Tachycardia [Unknown]
  - Brain natriuretic peptide increased [Unknown]
